FAERS Safety Report 10128852 (Version 1)
Quarter: 2014Q2

REPORT INFORMATION
  Report Type: Spontaneous
  Country: US (occurrence: None)
  Receive Date: 20140425
  Receipt Date: 20140425
  Transmission Date: 20141212
  Serious: No
  Sender: FDA-Public Use
  Company Number: None

PATIENT
  Sex: Male
  Weight: 79.5 kg

DRUGS (1)
  1. VECAMYL [Suspect]
     Indication: TOURETTE^S DISORDER
     Route: 048
     Dates: start: 20131014

REACTIONS (5)
  - Fatigue [None]
  - Dizziness [None]
  - Dizziness [None]
  - Drug level increased [None]
  - Therapy change [None]
